FAERS Safety Report 20542738 (Version 1)
Quarter: 2022Q1

REPORT INFORMATION
  Report Type: Other
  Country: US (occurrence: None)
  Receive Date: 20220302
  Receipt Date: 20220302
  Transmission Date: 20220423
  Serious: Yes (Other)
  Sender: FDA-Public Use
  Company Number: US-ROCHE-3033193

PATIENT
  Age: 57 Year
  Sex: Female

DRUGS (15)
  1. OCREVUS [Suspect]
     Active Substance: OCRELIZUMAB
     Indication: Primary progressive multiple sclerosis
     Dosage: 600 MG EVERY 6 MONTHS
     Route: 042
     Dates: start: 20211206
  2. GABAPENTIN [Concomitant]
     Active Substance: GABAPENTIN
  3. SIMVASTATIN [Concomitant]
     Active Substance: SIMVASTATIN
  4. MONTELUKAST SODIUM [Concomitant]
     Active Substance: MONTELUKAST SODIUM
  5. RESTASIS [Concomitant]
     Active Substance: CYCLOSPORINE
  6. DULOXETINE [Concomitant]
     Active Substance: DULOXETINE
  7. AMITRIPTYLINE [Concomitant]
     Active Substance: AMITRIPTYLINE
  8. SERTRALINE [Concomitant]
     Active Substance: SERTRALINE HYDROCHLORIDE
  9. FLONASE [Concomitant]
     Active Substance: FLUTICASONE PROPIONATE
  10. ZYRTEC [Concomitant]
     Active Substance: CETIRIZINE HYDROCHLORIDE
  11. MELATONIN [Concomitant]
     Active Substance: MELATONIN
  12. VITAMIN B12 [Concomitant]
     Active Substance: CYANOCOBALAMIN
  13. OMEPRAZOLE [Concomitant]
     Active Substance: OMEPRAZOLE
  14. CALCIUM WITH D3 [Concomitant]
  15. TECFIDERA [Concomitant]
     Active Substance: DIMETHYL FUMARATE

REACTIONS (9)
  - Headache [Recovered/Resolved]
  - Pain [Recovered/Resolved]
  - Pyrexia [Recovered/Resolved]
  - White blood cells urine positive [Unknown]
  - Urinary tract infection [Unknown]
  - Streptococcal bacteraemia [Unknown]
  - Protein urine present [Unknown]
  - Bladder spasm [Unknown]
  - Dry eye [Unknown]

NARRATIVE: CASE EVENT DATE: 20211206
